FAERS Safety Report 21980894 (Version 1)
Quarter: 2023Q1

REPORT INFORMATION
  Report Type: Report from Study
  Country: US (occurrence: US)
  Receive Date: 20230211
  Receipt Date: 20230211
  Transmission Date: 20230418
  Serious: No
  Sender: FDA-Public Use
  Company Number: US-002147023-NVSC2023US030924

PATIENT
  Age: 64 Year
  Sex: Female
  Weight: 112.49 kg

DRUGS (1)
  1. ENTRESTO [Suspect]
     Active Substance: SACUBITRIL\VALSARTAN
     Indication: Atrial fibrillation
     Dosage: UNK UNK, BID
     Route: 048
     Dates: start: 202210

REACTIONS (3)
  - Throat clearing [Recovered/Resolved]
  - Cough [Recovered/Resolved]
  - Product use in unapproved indication [Unknown]

NARRATIVE: CASE EVENT DATE: 20230208
